FAERS Safety Report 14032629 (Version 1)
Quarter: 2017Q4

REPORT INFORMATION
  Report Type: Spontaneous
  Country: CN (occurrence: CN)
  Receive Date: 20171003
  Receipt Date: 20171003
  Transmission Date: 20180321
  Serious: Yes (Other)
  Sender: FDA-Public Use
  Company Number: CN-009507513-1710CHN000107

PATIENT
  Age: 41 Year
  Sex: Female

DRUGS (3)
  1. VFEND [Suspect]
     Active Substance: VORICONAZOLE
     Indication: CHEMOTHERAPY
     Dosage: 100 MG, BID
     Route: 041
     Dates: start: 20170804, end: 20170809
  2. NORVANCOMYCIN HYDROCHLORIDE [Suspect]
     Active Substance: NORVANCOMYCIN HYDROCHLORIDE
     Indication: CHEMOTHERAPY
     Dosage: 1 G, QD
     Route: 041
     Dates: start: 20170802, end: 20170810
  3. TIENAM [Suspect]
     Active Substance: CILASTATIN SODIUM\IMIPENEM
     Indication: CHEMOTHERAPY
     Dosage: 1.5 G, QD
     Route: 041
     Dates: start: 20170801, end: 20170810

REACTIONS (4)
  - Illness anxiety disorder [Unknown]
  - Speech disorder [Unknown]
  - Paraesthesia [Unknown]
  - Hyperpyrexia [Recovered/Resolved]

NARRATIVE: CASE EVENT DATE: 201708
